FAERS Safety Report 8485453-4 (Version None)
Quarter: 2012Q3

REPORT INFORMATION
  Report Type: 
  Country: None (occurrence: None)
  Receive Date: 20120703
  Receipt Date: 20120629
  Transmission Date: 20120928
  Serious: Yes (Hospitalization)
  Sender: FDA-Public Use
  Company Number: FR-GILEAD-2012-0057309

PATIENT
  Sex: Male

DRUGS (8)
  1. TRUVADA [Suspect]
     Indication: HIV INFECTION
     Dosage: 1 DF, UNK
     Dates: start: 20060412
  2. SUSTIVA [Suspect]
     Indication: HIV INFECTION
     Dosage: 1 DF, UNK
     Dates: start: 20021104
  3. ZOLPIDEM TARTRATE [Concomitant]
  4. VASTEN                             /00880402/ [Concomitant]
  5. PLAVIX [Concomitant]
  6. PERINDOPRIL ERBUMINE [Concomitant]
  7. SUBUTEX [Concomitant]
  8. NEBIVOLOL HCL [Concomitant]

REACTIONS (2)
  - CHOLELITHIASIS [None]
  - PANCREATITIS ACUTE [None]
